FAERS Safety Report 7266147-X (Version None)
Quarter: 2011Q1

REPORT INFORMATION
  Report Type: 
  Country: None (occurrence: None)
  Receive Date: 20110120
  Receipt Date: 20110105
  Transmission Date: 20110831
  Serious: No
  Sender: FDA-Public Use
  Company Number: 2010EU006362

PATIENT

DRUGS (1)
  1. FK506-OINTMENT (TACROLIMUS) OINTMENT [Suspect]
     Indication: DERMATITIS ATOPIC

REACTIONS (1)
  - HOSPITALISATION [None]
